FAERS Safety Report 13160195 (Version 28)
Quarter: 2019Q3

REPORT INFORMATION
  Report Type: Report from Study
  Country: US (occurrence: US)
  Receive Date: 20170127
  Receipt Date: 20190830
  Transmission Date: 20191004
  Serious: Yes (Hospitalization, Other)
  Sender: FDA-Public Use
  Company Number: US-ACTELION-A-NJ2017-148974

PATIENT
  Sex: Female
  Weight: 76.64 kg

DRUGS (12)
  1. VELETRI [Suspect]
     Active Substance: EPOPROSTENOL
     Dosage: 28.5 NG/KG, PER MIN
     Route: 042
  2. DIGOXIN. [Concomitant]
     Active Substance: DIGOXIN
  3. ALDACTONE [Concomitant]
     Active Substance: SPIRONOLACTONE
  4. LASIX [Concomitant]
     Active Substance: FUROSEMIDE
  5. GABAPENTIN. [Concomitant]
     Active Substance: GABAPENTIN
  6. VELETRI [Suspect]
     Active Substance: EPOPROSTENOL
     Dosage: 24 NG/KG, PER MIN
     Route: 042
  7. SILDENAFIL CITRATE. [Concomitant]
     Active Substance: SILDENAFIL CITRATE
  8. WARFARIN [Concomitant]
     Active Substance: WARFARIN
  9. CHLORHEXIDINE [Suspect]
     Active Substance: CHLORHEXIDINE
     Indication: PRODUCT USED FOR UNKNOWN INDICATION
     Route: 061
  10. ADCIRCA [Concomitant]
     Active Substance: TADALAFIL
  11. VELETRI [Suspect]
     Active Substance: EPOPROSTENOL
     Indication: PULMONARY ARTERIAL HYPERTENSION
     Dosage: 32 NG/KG, PER MIN
     Route: 042
     Dates: start: 20131204
  12. PREDNISONE. [Concomitant]
     Active Substance: PREDNISONE

REACTIONS (36)
  - Device related infection [Unknown]
  - Nerve compression [Unknown]
  - Malaise [Unknown]
  - Arthralgia [Unknown]
  - Dyspnoea exertional [Unknown]
  - Hypersensitivity [Recovered/Resolved]
  - Lower respiratory tract infection [Unknown]
  - Thrombosis [Unknown]
  - Catheter site erythema [Unknown]
  - Device dislocation [Unknown]
  - Catheter site discharge [Unknown]
  - Dysphonia [Unknown]
  - Insomnia [Unknown]
  - Weight decreased [Unknown]
  - Hyperhidrosis [Unknown]
  - Catheter site pruritus [Unknown]
  - Hot flush [Unknown]
  - Catheter site infection [Unknown]
  - Catheter management [Unknown]
  - Pain in extremity [Unknown]
  - Catheter site pain [Recovered/Resolved]
  - Dyspnoea [Unknown]
  - Diarrhoea [Recovered/Resolved]
  - Nausea [Recovered/Resolved]
  - Catheter site irritation [Unknown]
  - Fatigue [Recovered/Resolved]
  - Catheter site vesicles [Unknown]
  - Catheter site discolouration [Unknown]
  - Jugular vein thrombosis [Unknown]
  - Adverse event [Unknown]
  - Hospitalisation [Not Recovered/Not Resolved]
  - Pain in jaw [Unknown]
  - Pain [Not Recovered/Not Resolved]
  - Vomiting [Unknown]
  - Feeling of body temperature change [Unknown]
  - Disturbance in attention [Unknown]
